FAERS Safety Report 25284915 (Version 1)
Quarter: 2025Q2

REPORT INFORMATION
  Report Type: Spontaneous
  Country: US (occurrence: US)
  Receive Date: 20250508
  Receipt Date: 20250508
  Transmission Date: 20250716
  Serious: No
  Sender: SANDOZ
  Company Number: US-002147023-NVSC2025US072841

PATIENT
  Age: 49 Year
  Sex: Male

DRUGS (2)
  1. LENVIMA [Suspect]
     Active Substance: LENVATINIB
     Indication: Thyroid cancer
     Dosage: 14 MG, QD
     Route: 048
     Dates: start: 20241028
  2. ZOMETA [Suspect]
     Active Substance: ZOLEDRONIC ACID
     Indication: Thyroid cancer
     Route: 065

REACTIONS (2)
  - Pyrexia [Unknown]
  - Pain [Unknown]
